FAERS Safety Report 25272519 (Version 1)
Quarter: 2025Q2

REPORT INFORMATION
  Report Type: Report from Study
  Country: US (occurrence: US)
  Receive Date: 20250506
  Receipt Date: 20250506
  Transmission Date: 20250716
  Serious: Yes (Other)
  Sender: ABBVIE
  Company Number: US-ABBVIE-6261808

PATIENT
  Age: 58 Year
  Sex: Male

DRUGS (1)
  1. SKYRIZI [Suspect]
     Active Substance: RISANKIZUMAB-RZAA
     Indication: Crohn^s disease
     Route: 058
     Dates: start: 20241107

REACTIONS (3)
  - Tuberculosis [Unknown]
  - Device issue [Unknown]
  - Multiple allergies [Not Recovered/Not Resolved]

NARRATIVE: CASE EVENT DATE: 20240101
